FAERS Safety Report 13211868 (Version 1)
Quarter: 2017Q1

REPORT INFORMATION
  Report Type: Spontaneous
  Country: US (occurrence: US)
  Receive Date: 20170210
  Receipt Date: 20170210
  Transmission Date: 20170428
  Serious: Yes (Other)
  Sender: FDA-Public Use
  Company Number: US-SAGENTPRD-2017-US-000025

PATIENT
  Age: 60 Year
  Sex: Male
  Weight: 91.2 kg

DRUGS (1)
  1. PROPOFOL INJECTABLE EMULSION, USP [Suspect]
     Active Substance: PROPOFOL
     Dosage: 400 MG ONE TIME
     Route: 042

REACTIONS (1)
  - Drug ineffective [Unknown]
